FAERS Safety Report 9883799 (Version 1)
Quarter: 2014Q1

REPORT INFORMATION
  Report Type: Spontaneous
  Country: BR (occurrence: BR)
  Receive Date: 20140210
  Receipt Date: 20140210
  Transmission Date: 20141002
  Serious: Yes (Other)
  Sender: FDA-Public Use
  Company Number: BR-ROCHE-1346659

PATIENT
  Age: 67 Year
  Sex: Female

DRUGS (5)
  1. RIVOTRIL [Suspect]
     Indication: ANXIETY
     Dosage: 6 DROPS
     Route: 065
  2. RIVOTRIL [Suspect]
     Indication: DEPRESSION
  3. LOSARTAN [Concomitant]
     Indication: HYPERTENSION
     Route: 065
     Dates: start: 2012
  4. ATENOLOL [Concomitant]
     Indication: HYPERTENSION
     Route: 065
     Dates: start: 2012
  5. EXODUS [Concomitant]
     Indication: DEPRESSION
     Route: 065
     Dates: start: 2012

REACTIONS (3)
  - Hypertension [Unknown]
  - Pyrexia [Unknown]
  - Communication disorder [Unknown]
